FAERS Safety Report 6268175-X (Version None)
Quarter: 2009Q3

REPORT INFORMATION
  Report Type: 
  Country: None (occurrence: None)
  Receive Date: 20090715
  Receipt Date: 20090707
  Transmission Date: 20100115
  Serious: Yes (Death, Other)
  Sender: FDA-Public Use
  Company Number: GB-RANBAXY-2008RR-16996

PATIENT
  Age: 70 Year
  Sex: Male

DRUGS (1)
  1. PARACETAMOL [Suspect]
     Indication: DRUG USE FOR UNKNOWN INDICATION
     Dosage: UNK MG/KG, QD
     Route: 048

REACTIONS (1)
  - LIVER INJURY [None]
